FAERS Safety Report 7688083-7 (Version None)
Quarter: 2011Q3

REPORT INFORMATION
  Report Type: 
  Country: None (occurrence: None)
  Receive Date: 20110817
  Receipt Date: 20110808
  Transmission Date: 20111222
  Serious: Yes (Hospitalization)
  Sender: FDA-Public Use
  Company Number: CA-BRISTOL-MYERS SQUIBB COMPANY-15843063

PATIENT
  Age: 54 Year
  Sex: Male

DRUGS (6)
  1. ALTACE [Concomitant]
  2. CRESTOR [Concomitant]
  3. ASPIRIN [Concomitant]
  4. VARENICLINE TARTRATE [Suspect]
  5. ONGLYZA [Suspect]
     Indication: TYPE 2 DIABETES MELLITUS
     Route: 048
     Dates: start: 20110531, end: 20110601
  6. GLUCOPHAGE [Concomitant]

REACTIONS (1)
  - RENAL FAILURE [None]
